FAERS Safety Report 4833091-4 (Version None)
Quarter: 2005Q4

REPORT INFORMATION
  Report Type: 
  Country: None (occurrence: None)
  Receive Date: 20051117
  Receipt Date: 20051103
  Transmission Date: 20060501
  Serious: Yes (Life-Threatening, Hospitalization, Other)
  Sender: FDA-Public Use
  Company Number: 2005-01834

PATIENT
  Age: 36 Year
  Sex: Female
  Weight: 50 kg

DRUGS (10)
  1. VELCADE [Suspect]
     Indication: HODGKIN'S DISEASE
     Dosage: 1.30 MG/M2
     Dates: start: 20050801, end: 20050811
  2. WARFARIN SODIUM [Concomitant]
  3. FOLIC ACID [Concomitant]
  4. ZOLOFT [Concomitant]
  5. PREMPRO [Concomitant]
  6. SINGULAIR [Concomitant]
  7. COLACE (DOCUSATE SODIUM) [Concomitant]
  8. FLAGYL [Concomitant]
  9. LACTULOSE [Concomitant]
  10. MULTIVITAMINS (ERGOCALCIFEROL, PANTHENOL, NICOTINAMIDE, RIBOFLAVIN, TH [Concomitant]

REACTIONS (16)
  - ABDOMINAL PAIN [None]
  - ASPARTATE AMINOTRANSFERASE INCREASED [None]
  - BLOOD CHLORIDE DECREASED [None]
  - BLOOD POTASSIUM DECREASED [None]
  - CATHETER RELATED INFECTION [None]
  - CONFUSIONAL STATE [None]
  - CONSTIPATION [None]
  - GLYCOSURIA [None]
  - HAEMOGLOBIN DECREASED [None]
  - HERPES ZOSTER [None]
  - HYPONATRAEMIA [None]
  - HYPOPHOSPHATAEMIA [None]
  - HYPOTENSION [None]
  - PLATELET COUNT DECREASED [None]
  - RENAL TUBULAR DISORDER [None]
  - STAPHYLOCOCCAL SEPSIS [None]
